FAERS Safety Report 7082586-4 (Version None)
Quarter: 2010Q3

REPORT INFORMATION
  Report Type: 
  Country: None (occurrence: None)
  Receive Date: 20100929
  Receipt Date: 20100617
  Transmission Date: 20110219
  Serious: No
  Sender: FDA-Public Use
  Company Number: US-WYE-H15853410

PATIENT
  Age: 48 Year
  Sex: Female
  Weight: 58.11 kg

DRUGS (9)
  1. PRISTIQ [Suspect]
     Indication: ANXIETY
     Dosage: 50 MG 1X PER 1 DAY ; 50 MG 1X PER 2 DAY
     Dates: start: 20090601, end: 20100617
  2. PRISTIQ [Suspect]
     Indication: IRRITABILITY
     Dosage: 50 MG 1X PER 1 DAY ; 50 MG 1X PER 2 DAY
     Dates: start: 20090601, end: 20100617
  3. PRISTIQ [Suspect]
     Indication: ANXIETY
     Dosage: 50 MG 1X PER 1 DAY ; 50 MG 1X PER 2 DAY
     Dates: start: 20100618, end: 20100620
  4. PRISTIQ [Suspect]
     Indication: IRRITABILITY
     Dosage: 50 MG 1X PER 1 DAY ; 50 MG 1X PER 2 DAY
     Dates: start: 20100618, end: 20100620
  5. INFERGEN [Suspect]
     Indication: HEPATITIS C
     Dates: end: 20100201
  6. RIBAVIRIN [Suspect]
     Indication: HEPATITIS C
     Dates: end: 20100201
  7. ALTACE [Concomitant]
  8. MAGNESIUM (MAGNESIUM) [Concomitant]
  9. REMERON [Concomitant]

REACTIONS (6)
  - DIZZINESS [None]
  - DRUG WITHDRAWAL SYNDROME [None]
  - FEELING ABNORMAL [None]
  - MIGRAINE [None]
  - PAIN IN EXTREMITY [None]
  - PARAESTHESIA [None]
